FAERS Safety Report 19878837 (Version 2)
Quarter: 2022Q1

REPORT INFORMATION
  Report Type: Spontaneous
  Country: US (occurrence: US)
  Receive Date: 20210924
  Receipt Date: 20220331
  Transmission Date: 20220424
  Serious: No
  Sender: FDA-Public Use
  Company Number: US-PFIZER INC-2021830682

PATIENT
  Age: 68 Year
  Sex: Female

DRUGS (1)
  1. XELJANZ XR [Suspect]
     Active Substance: TOFACITINIB CITRATE
     Indication: Rheumatoid arthritis
     Dosage: 11 MG, DAILY
     Route: 048
     Dates: start: 20210624

REACTIONS (13)
  - Fatigue [Recovering/Resolving]
  - Headache [Recovering/Resolving]
  - Pain [Not Recovered/Not Resolved]
  - Malaise [Unknown]
  - Joint swelling [Unknown]
  - Peripheral swelling [Unknown]
  - Tremor [Unknown]
  - Back pain [Unknown]
  - Arthralgia [Unknown]
  - Mobility decreased [Unknown]
  - Insomnia [Unknown]
  - Pain in extremity [Unknown]
  - Product dose omission in error [Unknown]

NARRATIVE: CASE EVENT DATE: 20210101
